FAERS Safety Report 7960055-4 (Version None)
Quarter: 2011Q4

REPORT INFORMATION
  Report Type: 
  Country: None (occurrence: None)
  Receive Date: 20111206
  Receipt Date: 20111123
  Transmission Date: 20120403
  Serious: Yes (Other)
  Sender: FDA-Public Use
  Company Number: PHHY2011BR102895

PATIENT
  Sex: Female
  Weight: 80 kg

DRUGS (3)
  1. CLOZAPINE [Suspect]
     Indication: SCHIZOPHRENIA
     Dosage: 4 DF, DAILY
     Route: 048
     Dates: start: 20050101
  2. RISPERIDONE [Concomitant]
     Indication: SLEEP DISORDER
     Dosage: 1 DF, AT NIGHT
     Route: 048
  3. CAPTOPRIL [Concomitant]
     Indication: HYPERTENSION
     Dosage: UNK UKN, BID
     Route: 048

REACTIONS (5)
  - LIP DISCOLOURATION [None]
  - MALAISE [None]
  - BLOOD PRESSURE DECREASED [None]
  - HYPERTENSION [None]
  - SOMNOLENCE [None]
